FAERS Safety Report 11686254 (Version 4)
Quarter: 2016Q4

REPORT INFORMATION
  Report Type: Spontaneous
  Country: JP (occurrence: JP)
  Receive Date: 20151030
  Receipt Date: 20161128
  Transmission Date: 20170206
  Serious: Yes (Death, Other)
  Sender: FDA-Public Use
  Company Number: JP-GLAXOSMITHKLINE-JP2015JPN146565

PATIENT
  Age: 59 Year
  Sex: Male

DRUGS (10)
  1. LAMICTAL [Suspect]
     Active Substance: LAMOTRIGINE
     Dosage: 25 MG, QD
     Route: 048
     Dates: start: 20150915, end: 20151002
  2. LAMICTAL [Suspect]
     Active Substance: LAMOTRIGINE
     Indication: EPILEPSY
     Dosage: 12.5 MG, QOD
     Route: 048
     Dates: start: 20150807, end: 20150824
  3. DEPAKENE [Suspect]
     Active Substance: VALPROIC ACID
     Indication: EPILEPSY
     Dosage: 700 MG, 1D
     Route: 048
  4. ZYPREXA [Concomitant]
     Active Substance: OLANZAPINE
     Dosage: 20 MG, 1D
  5. RISPERDAL [Concomitant]
     Active Substance: RISPERIDONE
     Dosage: 8 MG, 1D
  6. DEPAKENE [Suspect]
     Active Substance: VALPROIC ACID
     Indication: SCHIZOPHRENIA
     Dosage: 600 MG, 1D
     Route: 048
  7. LAMICTAL [Suspect]
     Active Substance: LAMOTRIGINE
     Indication: PSYCHIATRIC SYMPTOM
     Dosage: 12.5 MG, QD
     Route: 048
     Dates: start: 20150825, end: 20150914
  8. SENNOSIDE [Concomitant]
     Active Substance: SENNOSIDES
     Dosage: 24 MG, 1D
  9. OMEPRAZOLE. [Concomitant]
     Active Substance: OMEPRAZOLE
     Dosage: 20 MG, 1D
  10. THEO-DUR [Concomitant]
     Active Substance: THEOPHYLLINE ANHYDROUS
     Dosage: 400 MG, 1D

REACTIONS (11)
  - Dyspnoea [Unknown]
  - Rash generalised [Recovering/Resolving]
  - Pyrexia [Unknown]
  - Subcutaneous abscess [Not Recovered/Not Resolved]
  - Pneumonia [Fatal]
  - Mental disorder [Unknown]
  - Effusion [Unknown]
  - Peripheral swelling [Unknown]
  - Malnutrition [Unknown]
  - Feeding disorder [Unknown]
  - Stupor [Unknown]

NARRATIVE: CASE EVENT DATE: 2015
